FAERS Safety Report 17183565 (Version 3)
Quarter: 2020Q3

REPORT INFORMATION
  Report Type: Report from Study
  Country: US (occurrence: US)
  Receive Date: 20191220
  Receipt Date: 20200722
  Transmission Date: 20201102
  Serious: No
  Sender: FDA-Public Use
  Company Number: NVSC2019US075852

PATIENT
  Sex: Male

DRUGS (2)
  1. COREG [Concomitant]
     Active Substance: CARVEDILOL
     Indication: PRODUCT USED FOR UNKNOWN INDICATION
     Route: 065
  2. ENTRESTO [Suspect]
     Active Substance: SACUBITRIL\VALSARTAN
     Indication: PRODUCT USED FOR UNKNOWN INDICATION
     Dosage: 0.5 DF, BID
     Route: 048
     Dates: start: 201912

REACTIONS (6)
  - Dizziness [Unknown]
  - Product prescribing error [Unknown]
  - Boredom [Unknown]
  - Orthostatic hypotension [Unknown]
  - Hypotension [Unknown]
  - Disorientation [Unknown]
